FAERS Safety Report 9252242 (Version 1)
Quarter: 2013Q1

REPORT INFORMATION
  Report Type: Spontaneous
  Country: US (occurrence: None)
  Receive Date: 20130305
  Receipt Date: 20130305
  Transmission Date: 20140127
  Serious: Yes (Other)
  Sender: FDA-Public Use
  Company Number: 163-21880-12081910 (0)

PATIENT
  Age: 76 Year
  Sex: Female
  Weight: 73.03 kg

DRUGS (1)
  1. REVLIMID [Suspect]
     Dosage: 5 MG, X 21 DAYS, 7 DAYS OFF, PO
     Route: 048
     Dates: start: 20080112

REACTIONS (1)
  - Urinary tract infection [None]
